FAERS Safety Report 13325234 (Version 1)
Quarter: 2017Q1

REPORT INFORMATION
  Report Type: Spontaneous
  Country: US (occurrence: US)
  Receive Date: 20170310
  Receipt Date: 20170310
  Transmission Date: 20170428
  Serious: No
  Sender: FDA-Public Use
  Company Number: US-ACTELION-A-US2017-150954

PATIENT
  Age: 39 Year
  Sex: Female

DRUGS (19)
  1. UPTRAVI [Suspect]
     Active Substance: SELEXIPAG
     Indication: PULMONARY HYPERTENSION
     Dosage: UNK UNK, BID
     Route: 048
     Dates: start: 20160817, end: 20160921
  2. HYDROCODONE [Concomitant]
     Active Substance: HYDROCODONE
  3. NEXIUM [Concomitant]
     Active Substance: ESOMEPRAZOLE MAGNESIUM
  4. METRONIDAZOLE. [Concomitant]
     Active Substance: METRONIDAZOLE
  5. HYDROCORTISONE. [Concomitant]
     Active Substance: HYDROCORTISONE
  6. ZOLPIDEM [Concomitant]
     Active Substance: ZOLPIDEM\ZOLPIDEM TARTRATE
  7. OXCARBAZEPINE. [Concomitant]
     Active Substance: OXCARBAZEPINE
  8. DOXYCYCLINE. [Concomitant]
     Active Substance: DOXYCYCLINE
  9. SPIRONOLACTONE. [Concomitant]
     Active Substance: SPIRONOLACTONE
  10. AMBRISENTAN [Suspect]
     Active Substance: AMBRISENTAN
     Indication: PULMONARY HYPERTENSION
     Dosage: 10 MG, QD
     Route: 065
     Dates: start: 20120711
  11. LASIX [Concomitant]
     Active Substance: FUROSEMIDE
  12. ADVAIR HFA [Concomitant]
     Active Substance: FLUTICASONE PROPIONATE\SALMETEROL XINAFOATE
  13. ALBUTEROL. [Concomitant]
     Active Substance: ALBUTEROL
  14. PREDNISONE. [Concomitant]
     Active Substance: PREDNISONE
  15. CITALOPRAM [Concomitant]
     Active Substance: CITALOPRAM HYDROBROMIDE
  16. CARISOPRODOL. [Concomitant]
     Active Substance: CARISOPRODOL
  17. CIPRO [Concomitant]
     Active Substance: CIPROFLOXACIN HYDROCHLORIDE
  18. UPTRAVI [Suspect]
     Active Substance: SELEXIPAG
     Dosage: 200 MCG, BID
     Route: 048
     Dates: start: 20161201, end: 20161224
  19. REVATIO [Concomitant]
     Active Substance: SILDENAFIL CITRATE

REACTIONS (3)
  - Nausea [Unknown]
  - Headache [Unknown]
  - Activities of daily living impaired [Unknown]
